FAERS Safety Report 5470217-6 (Version None)
Quarter: 2007Q3

REPORT INFORMATION
  Report Type: 
  Country: None (occurrence: None)
  Receive Date: 20070924
  Receipt Date: 20070914
  Transmission Date: 20080115
  Serious: Yes (Hospitalization)
  Sender: FDA-Public Use
  Company Number: E2020-01630-SPO-US

PATIENT
  Age: 78 Year
  Sex: Male

DRUGS (9)
  1. ARICEPT [Suspect]
     Indication: DEMENTIA
     Dosage: 5 MG, 1 IN 1 D, ORAL; 10 MG, 1  IN 1 D, ORAL
     Dates: end: 20070911
  2. ARICEPT [Suspect]
     Indication: DEMENTIA
     Dosage: 5 MG, 1 IN 1 D, ORAL; 10 MG, 1  IN 1 D, ORAL
     Dates: start: 20070912
  3. SEROQUEL [Suspect]
     Dosage: 25 MG, 1 IN 1 D, ORAL
     Route: 048
     Dates: end: 20070914
  4. SINEMET [Concomitant]
  5. ENTACAPONE (ENTACAPONE) [Concomitant]
  6. TOLCAPONE (TOLCAPONE) [Concomitant]
  7. COUMADIN [Concomitant]
  8. IMDUR [Concomitant]
  9. ZOLOFT [Concomitant]

REACTIONS (3)
  - BLOOD PRESSURE DECREASED [None]
  - DRUG INTERACTION [None]
  - SYNCOPE [None]
